FAERS Safety Report 4476636-9 (Version None)
Quarter: 2004Q4

REPORT INFORMATION
  Report Type: 
  Country: None (occurrence: None)
  Receive Date: 20041015
  Receipt Date: 20041015
  Transmission Date: 20050328
  Serious: Yes (Hospitalization)
  Sender: FDA-Public Use
  Company Number: None

PATIENT
  Age: 69 Year
  Sex: Female
  Weight: 82 kg

DRUGS (14)
  1. PHENYTOIN [Suspect]
     Indication: CONVULSION
     Dosage: 300MG   TWICE DAILY   ORAL
     Route: 048
     Dates: start: 20040903, end: 20040921
  2. PHENYTOIN [Suspect]
     Indication: SUBARACHNOID HAEMORRHAGE
     Dosage: 300MG   TWICE DAILY   ORAL
     Route: 048
     Dates: start: 20040903, end: 20040921
  3. PREMARIN [Concomitant]
  4. HYDROCHLOROTHIAZIDE [Concomitant]
  5. METOPROLOL [Concomitant]
  6. LEVAQUIN [Concomitant]
  7. ALBUTEROL [Concomitant]
  8. NIMODIPINE [Concomitant]
  9. DILTIAZEM [Concomitant]
  10. MULTI-VITAMIN [Concomitant]
  11. FERROUS SULFATE TAB [Concomitant]
  12. ZANTAC [Concomitant]
  13. REGLAN [Concomitant]
  14. OXYCODONE [Concomitant]

REACTIONS (8)
  - CONFUSIONAL STATE [None]
  - HEPATOTOXICITY [None]
  - LEUKOCYTOSIS [None]
  - LIVER FUNCTION TEST ABNORMAL [None]
  - MENTAL STATUS CHANGES [None]
  - PYREXIA [None]
  - RASH MACULO-PAPULAR [None]
  - WERNICKE-KORSAKOFF SYNDROME [None]
